FAERS Safety Report 4727571-X (Version None)
Quarter: 2005Q3

REPORT INFORMATION
  Report Type: 
  Country: None (occurrence: None)
  Receive Date: 20050727
  Receipt Date: 20050727
  Transmission Date: 20060218
  Serious: No
  Sender: FDA-Public Use
  Company Number: None

PATIENT
  Sex: Female

DRUGS (1)
  1. LEVOTHYROXINE 25 MCG [Suspect]
     Indication: HYPOTHYROIDISM
     Dosage: 25 MCG QD
     Dates: start: 20040101

REACTIONS (2)
  - DEPRESSED MOOD [None]
  - THERAPEUTIC RESPONSE UNEXPECTED WITH DRUG SUBSTITUTION [None]
